FAERS Safety Report 6497049-4 (Version None)
Quarter: 2009Q4

REPORT INFORMATION
  Report Type: 
  Country: None (occurrence: None)
  Receive Date: 20091215
  Receipt Date: 20090206
  Transmission Date: 20100525
  Serious: No
  Sender: FDA-Public Use
  Company Number: A0767475A

PATIENT
  Age: 76 Year
  Sex: Male

DRUGS (5)
  1. AVODART [Suspect]
     Indication: BENIGN PROSTATIC HYPERPLASIA
     Dosage: .5MG PER DAY
     Route: 048
     Dates: start: 20090129
  2. FLOMAX [Suspect]
     Dosage: .4MG PER DAY
     Route: 048
     Dates: start: 20081229
  3. M.V.I. [Concomitant]
  4. GINGKO [Concomitant]
  5. ASCORBIC ACID [Concomitant]

REACTIONS (1)
  - ABDOMINAL PAIN UPPER [None]
